FAERS Safety Report 6915524-2 (Version None)
Quarter: 2010Q3

REPORT INFORMATION
  Report Type: 
  Country: None (occurrence: None)
  Receive Date: 20100804
  Receipt Date: 20100726
  Transmission Date: 20110219
  Serious: Yes (Other)
  Sender: FDA-Public Use
  Company Number: 2010JP003595

PATIENT
  Age: 15 Year
  Sex: Female
  Weight: 63.2 kg

DRUGS (29)
  1. TACROLIMUS [Suspect]
     Indication: LUPUS NEPHRITIS
     Dosage: 1.5 MG/D, ORAL; 3 MG, ORAL
     Route: 048
     Dates: start: 20080515, end: 20080519
  2. TACROLIMUS [Suspect]
     Indication: LUPUS NEPHRITIS
     Dosage: 1.5 MG/D, ORAL; 3 MG, ORAL
     Route: 048
     Dates: start: 20080520
  3. PREDNISOLONE [Suspect]
     Indication: LUPUS NEPHRITIS
     Dosage: 40 MG, ORAL; 36 MG, ORAL; 12 MG, ORAL; 11 MG, ORAL; 10 MG, ORAL; 9 MG, ORAL
     Route: 048
     Dates: end: 20080520
  4. PREDNISOLONE [Suspect]
     Indication: LUPUS NEPHRITIS
     Dosage: 40 MG, ORAL; 36 MG, ORAL; 12 MG, ORAL; 11 MG, ORAL; 10 MG, ORAL; 9 MG, ORAL
     Route: 048
     Dates: start: 20080521, end: 20080527
  5. PREDNISOLONE [Suspect]
     Indication: LUPUS NEPHRITIS
     Dosage: 40 MG, ORAL; 36 MG, ORAL; 12 MG, ORAL; 11 MG, ORAL; 10 MG, ORAL; 9 MG, ORAL
     Route: 048
     Dates: start: 20090121, end: 20090217
  6. PREDNISOLONE [Suspect]
     Indication: LUPUS NEPHRITIS
     Dosage: 40 MG, ORAL; 36 MG, ORAL; 12 MG, ORAL; 11 MG, ORAL; 10 MG, ORAL; 9 MG, ORAL
     Route: 048
     Dates: start: 20090218, end: 20090317
  7. PREDNISOLONE [Suspect]
     Indication: LUPUS NEPHRITIS
     Dosage: 40 MG, ORAL; 36 MG, ORAL; 12 MG, ORAL; 11 MG, ORAL; 10 MG, ORAL; 9 MG, ORAL
     Route: 048
     Dates: start: 20090318, end: 20090512
  8. PREDNISOLONE [Suspect]
     Indication: LUPUS NEPHRITIS
     Dosage: 40 MG, ORAL; 36 MG, ORAL; 12 MG, ORAL; 11 MG, ORAL; 10 MG, ORAL; 9 MG, ORAL
     Route: 048
     Dates: start: 20090513
  9. METHYLPREDNISOLONE [Suspect]
     Indication: LUPUS NEPHRITIS
     Dosage: SEE IMAGE
     Route: 048
     Dates: start: 20080528, end: 20080603
  10. METHYLPREDNISOLONE [Suspect]
     Indication: LUPUS NEPHRITIS
     Dosage: SEE IMAGE
     Route: 048
     Dates: start: 20080604, end: 20080611
  11. METHYLPREDNISOLONE [Suspect]
     Indication: LUPUS NEPHRITIS
     Dosage: SEE IMAGE
     Route: 048
     Dates: start: 20080612, end: 20080618
  12. METHYLPREDNISOLONE [Suspect]
     Indication: LUPUS NEPHRITIS
     Dosage: SEE IMAGE
     Route: 048
     Dates: start: 20080619, end: 20080701
  13. METHYLPREDNISOLONE [Suspect]
     Indication: LUPUS NEPHRITIS
     Dosage: SEE IMAGE
     Route: 048
     Dates: start: 20080702, end: 20080715
  14. METHYLPREDNISOLONE [Suspect]
     Indication: LUPUS NEPHRITIS
     Dosage: SEE IMAGE
     Route: 048
     Dates: start: 20080716, end: 20080819
  15. METHYLPREDNISOLONE [Suspect]
     Indication: LUPUS NEPHRITIS
     Dosage: SEE IMAGE
     Route: 048
     Dates: start: 20080820, end: 20080916
  16. METHYLPREDNISOLONE [Suspect]
     Indication: LUPUS NEPHRITIS
     Dosage: SEE IMAGE
     Route: 048
     Dates: start: 20080917, end: 20081019
  17. METHYLPREDNISOLONE [Suspect]
     Indication: LUPUS NEPHRITIS
     Dosage: SEE IMAGE
     Route: 048
     Dates: start: 20081020, end: 20081118
  18. METHYLPREDNISOLONE [Suspect]
     Indication: LUPUS NEPHRITIS
     Dosage: SEE IMAGE
     Route: 048
     Dates: start: 20081119, end: 20081125
  19. METHYLPREDNISOLONE [Suspect]
     Indication: LUPUS NEPHRITIS
     Dosage: SEE IMAGE
     Route: 048
     Dates: start: 20081126, end: 20081221
  20. METHYLPREDNISOLONE [Suspect]
     Indication: LUPUS NEPHRITIS
     Dosage: SEE IMAGE
     Route: 048
     Dates: start: 20081222, end: 20090120
  21. MUSOCTA (REBAMIPIDE) [Concomitant]
  22. ONEALFA (ALFACALCIDOL) [Concomitant]
  23. WARFARIN SODIUM [Concomitant]
  24. LORAZEPAM [Concomitant]
  25. BACTRIM [Concomitant]
  26. AMITRIPTYLINE HCL [Concomitant]
  27. LOSARTAN POTASSIUM [Concomitant]
  28. CRESTOR [Concomitant]
  29. RIZE (CLOTIAZEPAM) [Concomitant]

REACTIONS (1)
  - OSTEONECROSIS [None]
